FAERS Safety Report 19995753 (Version 1)
Quarter: 2021Q4

REPORT INFORMATION
  Report Type: Spontaneous
  Country: US (occurrence: US)
  Receive Date: 20211025
  Receipt Date: 20211025
  Transmission Date: 20220303
  Serious: No
  Sender: FDA-Public Use
  Company Number: None

PATIENT
  Age: 35 Year
  Sex: Female

DRUGS (1)
  1. COSENTYX [Suspect]
     Active Substance: SECUKINUMAB
     Indication: Psoriasis
     Dosage: ?          OTHER FREQUENCY:EVERY WEEK FOR WEEKS 2 AND 3;????OTHER FREQUENCY : UD
     Route: 058
     Dates: start: 202109

REACTIONS (2)
  - COVID-19 [None]
  - Pneumonia [None]
